FAERS Safety Report 21086841 (Version 2)
Quarter: 2023Q1

REPORT INFORMATION
  Report Type: Spontaneous
  Country: US (occurrence: None)
  Receive Date: 20220715
  Receipt Date: 20230117
  Transmission Date: 20230418
  Serious: No
  Sender: FDA-Public Use
  Company Number: US-SUPERNUS Pharmaceuticals, Inc.-SUP202204-000988

PATIENT

DRUGS (1)
  1. QELBREE [Suspect]
     Active Substance: VILOXAZINE HYDROCHLORIDE
     Indication: Product used for unknown indication
     Dosage: NOT PROVIDED

REACTIONS (5)
  - Skin odour abnormal [Unknown]
  - Hyperhidrosis [Unknown]
  - Obsessive-compulsive disorder [Unknown]
  - Oppositional defiant disorder [Unknown]
  - Anxiety [Unknown]
